FAERS Safety Report 4386612-2 (Version None)
Quarter: 2004Q2

REPORT INFORMATION
  Report Type: 
  Country: None (occurrence: None)
  Receive Date: 20040629
  Receipt Date: 20040615
  Transmission Date: 20050107
  Serious: Yes (Other)
  Sender: FDA-Public Use
  Company Number: GB-GLAXOSMITHKLINE-B0335842A

PATIENT
  Age: 51 Year
  Sex: Female
  Weight: 80 kg

DRUGS (4)
  1. COMBIVIR [Suspect]
     Indication: ANTIVIRAL PROPHYLAXIS
     Dosage: 1UNIT TWICE PER DAY
     Route: 048
     Dates: start: 20040419, end: 20040514
  2. NELFINAVIR [Suspect]
     Indication: ANTIVIRAL PROPHYLAXIS
     Dosage: 5UNIT TWICE PER DAY
     Route: 048
     Dates: start: 20040419, end: 20040514
  3. IMODIUM [Concomitant]
     Route: 048
     Dates: end: 20040501
  4. MAXOLON [Concomitant]
     Indication: VOMITING
     Route: 048
     Dates: start: 20040419, end: 20040514

REACTIONS (3)
  - BLOOD ALKALINE PHOSPHATASE INCREASED [None]
  - BLOOD BILIRUBIN INCREASED [None]
  - LIVER FUNCTION TEST ABNORMAL [None]
